FAERS Safety Report 9554456 (Version 4)
Quarter: 2013Q4

REPORT INFORMATION
  Report Type: Report from Study
  Country: JP (occurrence: JP)
  Receive Date: 20130925
  Receipt Date: 20131225
  Transmission Date: 20140711
  Serious: Yes (Death, Hospitalization)
  Sender: FDA-Public Use
  Company Number: JP-ROCHE-1244295

PATIENT
  Age: 68 Year
  Sex: Female
  Weight: 35 kg

DRUGS (2)
  1. PEG-INTERFERON ALFA 2A [Suspect]
     Indication: CHRONIC HEPATITIS B
     Route: 058
     Dates: start: 20111202
  2. PEG-INTERFERON ALFA 2A [Suspect]
     Indication: CHRONIC HEPATITIS B
     Route: 058
     Dates: start: 20120525, end: 20120929

REACTIONS (8)
  - Depression [Not Recovered/Not Resolved]
  - Pyelonephritis [Recovering/Resolving]
  - Altered state of consciousness [Fatal]
  - Pneumonia aspiration [Fatal]
  - Vomiting [Fatal]
  - Respiratory failure [Fatal]
  - Pyrexia [Unknown]
  - Pneumonia mycoplasmal [Recovering/Resolving]
